FAERS Safety Report 13836857 (Version 1)
Quarter: 2017Q3

REPORT INFORMATION
  Report Type: Spontaneous
  Country: US (occurrence: US)
  Receive Date: 20170804
  Receipt Date: 20170804
  Transmission Date: 20171127
  Serious: No
  Sender: FDA-Public Use
  Company Number: US-ROCHE-1157437

PATIENT
  Age: 62 Year
  Sex: Female

DRUGS (4)
  1. TRAMADOL. [Concomitant]
     Active Substance: TRAMADOL
     Indication: PAIN
     Route: 065
  2. ADVIL [Concomitant]
     Active Substance: IBUPROFEN
     Route: 065
  3. BONVIVA [Suspect]
     Active Substance: IBANDRONATE SODIUM
     Indication: OSTEOPOROSIS
     Route: 048
  4. METHYLPREDNISONE (UNK INGREDIENTS) [Concomitant]
     Route: 065

REACTIONS (4)
  - Back pain [Recovering/Resolving]
  - Drug dependence [Not Recovered/Not Resolved]
  - Intervertebral disc protrusion [Not Recovered/Not Resolved]
  - Musculoskeletal discomfort [Not Recovered/Not Resolved]
